FAERS Safety Report 10344123 (Version 8)
Quarter: 2015Q2

REPORT INFORMATION
  Report Type: Report from Study
  Country: CA (occurrence: CA)
  Receive Date: 20140728
  Receipt Date: 20150619
  Transmission Date: 20150821
  Serious: Yes (Hospitalization, Other)
  Sender: FDA-Public Use
  Company Number: CA-ROCHE-1110798

PATIENT
  Age: 72 Year
  Sex: Female
  Weight: 76.2 kg

DRUGS (15)
  1. OMEGA 3 [Concomitant]
     Active Substance: OMEGA-3 FATTY ACIDS
  2. RITUXAN [Suspect]
     Active Substance: RITUXIMAB
     Indication: RHEUMATOID ARTHRITIS
     Route: 042
     Dates: start: 20110516
  3. DIPHENHYDRAMINE HCL [Concomitant]
     Active Substance: DIPHENHYDRAMINE HYDROCHLORIDE
     Indication: PREMEDICATION
     Route: 048
     Dates: start: 20120827, end: 20120827
  4. PREDNISONE. [Concomitant]
     Active Substance: PREDNISONE
  5. RITUXAN [Suspect]
     Active Substance: RITUXIMAB
     Route: 042
     Dates: start: 20140805
  6. TYLENOL [Concomitant]
     Active Substance: ACETAMINOPHEN
     Dosage: AT NIGHT NOS
     Route: 065
  7. ACETAMINOPHEN. [Concomitant]
     Active Substance: ACETAMINOPHEN
     Route: 048
     Dates: start: 20110516
  8. METHOTREXATE [Concomitant]
     Active Substance: METHOTREXATE
  9. DIPHENHYDRAMINE HCL [Concomitant]
     Active Substance: DIPHENHYDRAMINE HYDROCHLORIDE
     Route: 048
     Dates: start: 20110516
  10. ACETAMINOPHEN. [Concomitant]
     Active Substance: ACETAMINOPHEN
     Indication: PREMEDICATION
     Route: 048
     Dates: start: 20120827, end: 20120827
  11. METHYLPREDNISOLONE. [Concomitant]
     Active Substance: METHYLPREDNISOLONE
     Indication: PREMEDICATION
     Route: 042
     Dates: start: 20120827, end: 20120827
  12. ROCALTROL [Concomitant]
     Active Substance: CALCITRIOL
  13. OMEPRAZOLE. [Concomitant]
     Active Substance: OMEPRAZOLE
  14. CELEBREX [Concomitant]
     Active Substance: CELECOXIB
  15. METHYLPREDNISOLONE. [Concomitant]
     Active Substance: METHYLPREDNISOLONE
     Route: 042
     Dates: start: 20110516

REACTIONS (12)
  - Cough [Unknown]
  - Blood pressure increased [Unknown]
  - Cataract [Unknown]
  - Asthenia [Unknown]
  - Stress [Unknown]
  - Arthralgia [Not Recovered/Not Resolved]
  - Heart rate decreased [Unknown]
  - Cardiac disorder [Unknown]
  - Spinal pain [Not Recovered/Not Resolved]
  - Musculoskeletal pain [Not Recovered/Not Resolved]
  - Flushing [Unknown]
  - Infusion related reaction [Unknown]

NARRATIVE: CASE EVENT DATE: 20110517
